FAERS Safety Report 7668458-2 (Version None)
Quarter: 2011Q3

REPORT INFORMATION
  Report Type: 
  Country: None (occurrence: None)
  Receive Date: 20110808
  Receipt Date: 20110725
  Transmission Date: 20111222
  Serious: Yes (Other)
  Sender: FDA-Public Use
  Company Number: GB-UCBSA-037785

PATIENT
  Sex: Female

DRUGS (5)
  1. OMEPRAZOLE [Concomitant]
     Dosage: 20 MG
  2. FOLIC ACID [Concomitant]
     Dosage: 10 MG
  3. CERTOLIZUMAB [Suspect]
     Indication: RHEUMATOID ARTHRITIS
     Dosage: 400 (UNITS UNSPECIFIED); 3 DOSES
     Route: 058
     Dates: start: 20110415
  4. NAPROXEN [Concomitant]
     Dosage: 500 MG
  5. METHOTREXATE [Concomitant]
     Indication: RHEUMATOID ARTHRITIS
     Dates: start: 20110415

REACTIONS (1)
  - PNEUMONITIS [None]
